FAERS Safety Report 10899173 (Version 1)
Quarter: 2015Q1

REPORT INFORMATION
  Report Type: Spontaneous
  Country: US (occurrence: US)
  Receive Date: 20150309
  Receipt Date: 20150309
  Transmission Date: 20150721
  Serious: No
  Sender: FDA-Public Use
  Company Number: US-ASTRAZENECA-2011SE17254

PATIENT
  Sex: Female

DRUGS (20)
  1. CRESTOR [Suspect]
     Active Substance: ROSUVASTATIN CALCIUM
     Route: 048
  2. CELEBREX [Concomitant]
     Active Substance: CELECOXIB
  3. VICODIN [Concomitant]
     Active Substance: ACETAMINOPHEN\HYDROCODONE BITARTRATE
  4. NITROSTAT [Concomitant]
     Active Substance: NITROGLYCERIN
  5. FISH OIL [Concomitant]
     Active Substance: FISH OIL
  6. COLACE [Concomitant]
     Active Substance: DOCUSATE SODIUM
  7. MONOPRIL [Concomitant]
     Active Substance: FOSINOPRIL SODIUM
  8. ACTIFIED/ ATARAX [Concomitant]
  9. RESTASIS [Concomitant]
     Active Substance: CYCLOSPORINE
  10. CYMBALTA [Concomitant]
     Active Substance: DULOXETINE HYDROCHLORIDE
  11. HALCION [Concomitant]
     Active Substance: TRIAZOLAM
  12. METAMUCIL OR FIBER [Concomitant]
  13. IRON WITH AMINO ACIDS [Concomitant]
  14. OMEPRAZOLE. [Concomitant]
     Active Substance: OMEPRAZOLE
  15. FENTYNL PATCH [Concomitant]
  16. ATACAND HCT [Suspect]
     Active Substance: CANDESARTAN CILEXETIL\HYDROCHLOROTHIAZIDE
     Dosage: 12.5 MG  DAILY PRN
     Route: 048
  17. NEXIUM [Suspect]
     Active Substance: ESOMEPRAZOLE MAGNESIUM
     Route: 048
  18. GLUCOPHAGE XR [Concomitant]
     Active Substance: METFORMIN HYDROCHLORIDE
  19. HCTZ [Concomitant]
     Active Substance: HYDROCHLOROTHIAZIDE
  20. MULTIVITAMINS [Concomitant]
     Active Substance: VITAMINS

REACTIONS (4)
  - Urticaria [Unknown]
  - Drug dose omission [Unknown]
  - Rash generalised [Unknown]
  - Pain [Unknown]
